FAERS Safety Report 24901437 (Version 1)
Quarter: 2025Q1

REPORT INFORMATION
  Report Type: Report from Study
  Country: CA (occurrence: CA)
  Receive Date: 20250129
  Receipt Date: 20250129
  Transmission Date: 20250409
  Serious: Yes (Other)
  Sender: ABBVIE
  Company Number: CA-ABBVIE-6101669

PATIENT
  Sex: Female

DRUGS (1)
  1. RINVOQ [Suspect]
     Active Substance: UPADACITINIB
     Indication: Rheumatoid arthritis
     Route: 048
     Dates: start: 20241115

REACTIONS (5)
  - Loss of consciousness [Unknown]
  - Clostridium difficile colitis [Unknown]
  - Swelling [Unknown]
  - Haematochezia [Unknown]
  - Gastrointestinal disorder [Unknown]
